FAERS Safety Report 15769782 (Version 1)
Quarter: 2018Q4

REPORT INFORMATION
  Report Type: Spontaneous
  Country: US (occurrence: US)
  Receive Date: 20181218
  Receipt Date: 20181218
  Transmission Date: 20190205
  Serious: No
  Sender: FDA-Public Use
  Company Number: None

PATIENT

DRUGS (2)
  1. STERILE WATER FOR IRRIGATION STERILE WATER FOR IRRIGATION [Suspect]
     Active Substance: WATER
  2. AMPICILLIN AMPICILLIN [Suspect]
     Active Substance: AMPICILLIN

REACTIONS (1)
  - Product preparation issue [None]
